FAERS Safety Report 18855131 (Version 1)
Quarter: 2021Q1

REPORT INFORMATION
  Report Type: Spontaneous
  Country: US (occurrence: US)
  Receive Date: 20210205
  Receipt Date: 20210205
  Transmission Date: 20210420
  Serious: Yes (Death, Hospitalization, Other)
  Sender: FDA-Public Use
  Company Number: US-TEVA-2021-US-1873388

PATIENT
  Age: 40 Year
  Sex: Female

DRUGS (7)
  1. OXYCONTIN [Suspect]
     Active Substance: OXYCODONE HYDROCHLORIDE
  2. HYDROCODONE [Suspect]
     Active Substance: HYDROCODONE
     Indication: PAIN
     Route: 065
     Dates: start: 2005
  3. LORAZEPAM. [Concomitant]
     Active Substance: LORAZEPAM
     Dates: end: 20181018
  4. BENADRYL [Concomitant]
     Active Substance: DIPHENHYDRAMINE HYDROCHLORIDE
     Dates: end: 20181018
  5. PROMETHAZINE HYDROCHLORIDE. [Suspect]
     Active Substance: PROMETHAZINE HYDROCHLORIDE
     Indication: NAUSEA
     Dosage: 100 MILLIGRAM DAILY;
     Route: 048
     Dates: start: 2005
  6. OXYCONTIN [Suspect]
     Active Substance: OXYCODONE HYDROCHLORIDE
     Indication: PAIN
     Dates: start: 2005
  7. TYGACIL [Concomitant]
     Active Substance: TIGECYCLINE
     Dates: end: 20181018

REACTIONS (7)
  - Fall [Recovered/Resolved]
  - Hypotension [Recovered/Resolved]
  - Nausea [Unknown]
  - Dizziness [Recovered/Resolved]
  - Drug dependence [Unknown]
  - Stevens-Johnson syndrome [Fatal]
  - Vomiting [Unknown]

NARRATIVE: CASE EVENT DATE: 2005
